FAERS Safety Report 8875306 (Version 1)
Quarter: 2012Q4

REPORT INFORMATION
  Report Type: 
  Country: US (occurrence: US)
  Receive Date: 20121029
  Receipt Date: 20121029
  Transmission Date: 20130627
  Serious: Yes (Other)
  Sender: FDA-Public Use
  Company Number: US-TEVA-366617USA

PATIENT
  Sex: Male

DRUGS (1)
  1. ACICLOVIR [Suspect]
     Dates: start: 201209

REACTIONS (7)
  - Herpes zoster oticus [Unknown]
  - Deafness [Unknown]
  - Cerebrovascular accident [Unknown]
  - Gastric ulcer [Unknown]
  - Intestinal ulcer [Unknown]
  - Dysarthria [Unknown]
  - Abdominal distension [Unknown]
